FAERS Safety Report 4412181-4 (Version None)
Quarter: 2004Q3

REPORT INFORMATION
  Report Type: 
  Country: None (occurrence: None)
  Receive Date: 20040727
  Receipt Date: 20040716
  Transmission Date: 20050211
  Serious: No
  Sender: FDA-Public Use
  Company Number: 04P-161-0267528-00

PATIENT
  Age: 16 Month
  Sex: Male
  Weight: 12 kg

DRUGS (6)
  1. SEVOFLURANE [Suspect]
     Indication: INDUCTION OF ANAESTHESIA
     Dosage: INHALATION; SEE IMAGE
     Route: 055
  2. SEVOFLURANE [Suspect]
     Indication: MAINTENANCE OF ANAESTHESIA
     Dosage: INHALATION; SEE IMAGE
     Route: 055
  3. NITROUS OXIDE [Concomitant]
  4. OXYGEN [Concomitant]
  5. REMIFENTANIL [Concomitant]
  6. MIDAZOLAM [Concomitant]

REACTIONS (4)
  - ANAESTHETIC COMPLICATION [None]
  - BODY TEMPERATURE INCREASED [None]
  - METABOLIC ACIDOSIS [None]
  - TACHYCARDIA [None]
